FAERS Safety Report 4431855-2 (Version None)
Quarter: 2004Q3

REPORT INFORMATION
  Report Type: 
  Country: None (occurrence: None)
  Receive Date: 20040819
  Receipt Date: 20040804
  Transmission Date: 20050211
  Serious: No
  Sender: FDA-Public Use
  Company Number: 04P-114-0269404-00

PATIENT
  Age: 71 Year
  Sex: Female

DRUGS (3)
  1. VERAPAMIL HCL [Suspect]
     Dosage: 120 MG, 1 IN 1 D, ORAL
     Route: 048
  2. NORFLOXACIN [Suspect]
     Indication: URINARY TRACT INFECTION
     Dosage: 400 MG, 2 IN 1 D, PER ORAL
     Route: 048
     Dates: start: 20040614, end: 20040616
  3. LEVOTHYROXINE SODIUM [Concomitant]

REACTIONS (3)
  - DRUG INTERACTION [None]
  - PALPITATIONS [None]
  - TACHYCARDIA [None]
